FAERS Safety Report 24999746 (Version 4)
Quarter: 2025Q3

REPORT INFORMATION
  Report Type: Spontaneous
  Country: US (occurrence: US)
  Receive Date: 20250222
  Receipt Date: 20250724
  Transmission Date: 20251021
  Serious: Yes (Other)
  Sender: SANOFI AVENTIS
  Company Number: US-SA-2025SA046066

PATIENT
  Age: 50 Year
  Sex: Female

DRUGS (3)
  1. DUPIXENT [Suspect]
     Active Substance: DUPILUMAB
     Indication: Asthma
     Route: 058
     Dates: start: 20250109, end: 20250109
  2. DUPIXENT [Suspect]
     Active Substance: DUPILUMAB
     Dosage: 300 MG, QOW
     Route: 058
     Dates: start: 2025
  3. PREDNISONE [Concomitant]
     Active Substance: PREDNISONE
     Dates: start: 20250312, end: 20250318

REACTIONS (13)
  - Pulmonary congestion [Recovering/Resolving]
  - Injection site discomfort [Recovered/Resolved]
  - Acne [Not Recovered/Not Resolved]
  - Sputum discoloured [Recovering/Resolving]
  - Fatigue [Recovered/Resolved]
  - Lethargy [Recovered/Resolved]
  - Secretion discharge [Recovering/Resolving]
  - Condition aggravated [Recovering/Resolving]
  - Asthma [Recovering/Resolving]
  - Rebound effect [Recovering/Resolving]
  - Pruritus [Recovered/Resolved]
  - Dry eye [Unknown]
  - Rash [Recovered/Resolved]

NARRATIVE: CASE EVENT DATE: 20250101
